FAERS Safety Report 7485803-1 (Version None)
Quarter: 2011Q2

REPORT INFORMATION
  Report Type: 
  Country: None (occurrence: None)
  Receive Date: 20110516
  Receipt Date: 20110516
  Transmission Date: 20111010
  Serious: Yes (Life-Threatening)
  Sender: FDA-Public Use
  Company Number: None

PATIENT
  Sex: Female
  Weight: 54.8852 kg

DRUGS (1)
  1. LITHOBID [Suspect]
     Indication: BIPOLAR I DISORDER
     Dosage: ONE LITHOBID EVERY OTHER NOC ORAL  1200MG
     Route: 048
     Dates: start: 19690101

REACTIONS (1)
  - RENAL FAILURE [None]
